FAERS Safety Report 9055542 (Version 4)
Quarter: 2013Q4

REPORT INFORMATION
  Report Type: Spontaneous
  Country: JP (occurrence: JP)
  Receive Date: 20130206
  Receipt Date: 20131210
  Transmission Date: 20140711
  Serious: Yes (Hospitalization)
  Sender: FDA-Public Use
  Company Number: JP-GLAXOSMITHKLINE-B0865014A

PATIENT
  Age: 83 Year
  Sex: Male

DRUGS (2)
  1. ARIXTRA [Suspect]
     Indication: THROMBOSIS PROPHYLAXIS
     Dosage: 2.5MG PER DAY
     Route: 058
     Dates: start: 20130126, end: 20130128
  2. ROPION [Concomitant]
     Indication: PAIN
     Dosage: 50MG PER DAY
     Route: 042
     Dates: start: 20130126, end: 20130127

REACTIONS (1)
  - Extradural haematoma [Recovered/Resolved]
